FAERS Safety Report 8888322 (Version 3)
Quarter: 2012Q4

REPORT INFORMATION
  Report Type: 
  Country: US (occurrence: US)
  Receive Date: 20121106
  Receipt Date: 20121204
  Transmission Date: 20130627
  Serious: Yes (Hospitalization)
  Sender: FDA-Public Use
  Company Number: US-PFIZER INC-2012273999

PATIENT
  Age: 65 Year
  Sex: Male
  Weight: 85 kg

DRUGS (8)
  1. SUTENT [Suspect]
     Indication: RENAL CELL CARCINOMA NOS
     Dosage: 50 mg, 42 day cycle
     Dates: start: 20121017
  2. NEXIUM [Concomitant]
     Dosage: UNK
  3. CARVEDILOL [Concomitant]
  4. METFORMIN [Concomitant]
  5. GLIMEPIRIDE [Concomitant]
  6. HYDROCHLOROTHIAZIDE [Concomitant]
  7. NORVASC [Concomitant]
  8. SIMVASTATIN [Concomitant]

REACTIONS (10)
  - Dyspnoea [Unknown]
  - Cardiac arrest [Unknown]
  - Asthenia [Unknown]
  - Fatigue [Unknown]
  - Dyspnoea [Unknown]
  - Sleep disorder [Unknown]
  - Oedema peripheral [Unknown]
  - Blood sodium decreased [Unknown]
  - Disease progression [Unknown]
  - Renal cell carcinoma [Unknown]
